FAERS Safety Report 5282181-3 (Version None)
Quarter: 2007Q1

REPORT INFORMATION
  Report Type: 
  Country: None (occurrence: None)
  Receive Date: 20070330
  Receipt Date: 20070320
  Transmission Date: 20070707
  Serious: Yes (Hospitalization, Other)
  Sender: FDA-Public Use
  Company Number: PFIZER INC-2007014077

PATIENT
  Sex: Male
  Weight: 58.5 kg

DRUGS (1)
  1. LIPITOR [Suspect]
     Indication: BLOOD CHOLESTEROL INCREASED
     Route: 048
     Dates: start: 20030101, end: 20070216

REACTIONS (11)
  - ABASIA [None]
  - ARTHRALGIA [None]
  - ARTHROPATHY [None]
  - HYPERAESTHESIA [None]
  - HYPOTONIA [None]
  - JOINT SWELLING [None]
  - MUSCLE ATROPHY [None]
  - MYALGIA [None]
  - NEOPLASM MALIGNANT [None]
  - PARANEOPLASTIC SYNDROME [None]
  - WEIGHT DECREASED [None]
